FAERS Safety Report 11511196 (Version 1)
Quarter: 2015Q3

REPORT INFORMATION
  Report Type: Spontaneous
  Country: AU (occurrence: AU)
  Receive Date: 20150915
  Receipt Date: 20150915
  Transmission Date: 20151125
  Serious: Yes (Other)
  Sender: FDA-Public Use
  Company Number: PHHY2015AU107171

PATIENT
  Sex: Male

DRUGS (2)
  1. EXFORGE HCT [Suspect]
     Active Substance: AMLODIPINE BESYLATE\HYDROCHLOROTHIAZIDE\VALSARTAN
     Indication: BLOOD PRESSURE MANAGEMENT
     Dosage: 1 DF, (160 VALSARTAN, 10 AMLODIPINE AND 25 HYDROCLOTOTHIAZIDE)
     Route: 065
  2. EXFORGE [Suspect]
     Active Substance: AMLODIPINE BESYLATE\VALSARTAN
     Indication: HYPERTENSION
     Dosage: 1 DF, QD (320 VALSARTAN AND 5 AMLODIPINE)
     Route: 065

REACTIONS (3)
  - Head injury [Unknown]
  - Drug prescribing error [Unknown]
  - Fall [Unknown]
